FAERS Safety Report 5727793-5 (Version None)
Quarter: 2008Q2

REPORT INFORMATION
  Report Type: 
  Country: None (occurrence: None)
  Receive Date: 20080505
  Receipt Date: 20080423
  Transmission Date: 20081010
  Serious: Yes (Other)
  Sender: FDA-Public Use
  Company Number: US-PFIZER INC-2008013261

PATIENT
  Sex: Female
  Weight: 50.8 kg

DRUGS (2)
  1. CHANTIX [Suspect]
     Indication: SMOKING CESSATION THERAPY
  2. CHANTIX [Suspect]
     Indication: TOBACCO ABUSE

REACTIONS (3)
  - DYSSTASIA [None]
  - HEMICEPHALALGIA [None]
  - VERTIGO [None]
